FAERS Safety Report 10789550 (Version 1)
Quarter: 2015Q1

REPORT INFORMATION
  Report Type: Report from Study
  Country: JP (occurrence: JP)
  Receive Date: 20150212
  Receipt Date: 20150212
  Transmission Date: 20150721
  Serious: Yes (Hospitalization, Other)
  Sender: FDA-Public Use
  Company Number: PHHO2011JP04269

PATIENT
  Age: 61 Year
  Sex: Female
  Weight: 53 kg

DRUGS (10)
  1. AFINITOR [Suspect]
     Active Substance: EVEROLIMUS
     Indication: BREAST CANCER METASTATIC
     Dosage: 10 MG, QD
     Route: 048
     Dates: start: 20101020, end: 20110220
  2. VOLTAREN [Suspect]
     Active Substance: DICLOFENAC SODIUM
     Indication: CANCER PAIN
     Dosage: 74.4 MG, QD
     Route: 048
     Dates: start: 20090617
  3. SELBEX [Concomitant]
     Active Substance: TEPRENONE
     Indication: GASTRITIS PROPHYLAXIS
  4. RESTAMIN [Concomitant]
     Active Substance: DIPHENHYDRAMINE
     Indication: PRURITUS
  5. OZEX [Suspect]
     Active Substance: TOSUFLOXACIN TOSYLATE
     Indication: URINARY TRACT INFECTION
     Dosage: 300 MG
     Route: 048
     Dates: start: 20110222
  6. CALONAL [Concomitant]
     Active Substance: ACETAMINOPHEN
  7. CEFTRIAXONE. [Concomitant]
     Active Substance: CEFTRIAXONE
     Indication: CYSTITIS
  8. OXYNORM [Concomitant]
     Active Substance: OXYCODONE HYDROCHLORIDE
     Indication: CANCER PAIN
  9. OXYCONTIN [Concomitant]
     Active Substance: OXYCODONE HYDROCHLORIDE
     Indication: CANCER PAIN
  10. COMPARATOR EXEMESTANE [Suspect]
     Active Substance: EXEMESTANE
     Indication: BREAST CANCER METASTATIC
     Dosage: 25 MG, QD
     Route: 065

REACTIONS (6)
  - Small intestine ulcer [Recovered/Resolved]
  - Haemoglobin decreased [Not Recovered/Not Resolved]
  - Renal impairment [Recovered/Resolved]
  - Faeces discoloured [Recovered/Resolved]
  - Pyrexia [Not Recovered/Not Resolved]
  - Malignant neoplasm progression [Unknown]

NARRATIVE: CASE EVENT DATE: 20110222
